FAERS Safety Report 6202582-6 (Version None)
Quarter: 2009Q2

REPORT INFORMATION
  Report Type: 
  Country: None (occurrence: None)
  Receive Date: 20090520
  Receipt Date: 20090513
  Transmission Date: 20091009
  Serious: Yes (Other)
  Sender: FDA-Public Use
  Company Number: 2009SP010352

PATIENT

DRUGS (2)
  1. DESLORATADINE [Suspect]
     Indication: URTICARIA
     Dosage: 5 MG;QD;SL
     Dates: start: 20090507, end: 20090511
  2. ALBUTEROL [Concomitant]

REACTIONS (1)
  - ASTHMA [None]
